FAERS Safety Report 25049912 (Version 1)
Quarter: 2025Q1

REPORT INFORMATION
  Report Type: Spontaneous
  Country: IT (occurrence: IT)
  Receive Date: 20250307
  Receipt Date: 20250307
  Transmission Date: 20250408
  Serious: Yes (Death, Hospitalization, Other)
  Sender: PAREXEL
  Company Number: IT-STEMLINE THERAPEUTICS, INC-2025-STML-IT000360

PATIENT

DRUGS (3)
  1. ELZONRIS [Suspect]
     Active Substance: TAGRAXOFUSP-ERZS
     Indication: Blastic plasmacytoid dendritic cell neoplasia
     Route: 042
     Dates: start: 20241203, end: 20241205
  2. ELZONRIS [Suspect]
     Active Substance: TAGRAXOFUSP-ERZS
     Route: 042
  3. ELZONRIS [Suspect]
     Active Substance: TAGRAXOFUSP-ERZS
     Route: 042
     Dates: start: 20250120, end: 20250124

REACTIONS (2)
  - Sepsis [Fatal]
  - Capillary leak syndrome [Recovered/Resolved]
